FAERS Safety Report 9759170 (Version 2)
Quarter: 2013Q4

REPORT INFORMATION
  Report Type: Spontaneous
  Country: CN (occurrence: CN)
  Receive Date: 20131216
  Receipt Date: 20131227
  Transmission Date: 20140711
  Serious: Yes (Other)
  Sender: FDA-Public Use
  Company Number: CN-SA-2013SA126975

PATIENT
  Age: 61 Year
  Sex: Female
  Weight: 58.5 kg

DRUGS (3)
  1. AMARYL [Suspect]
     Indication: DIABETES MELLITUS
     Route: 048
     Dates: start: 201311, end: 20131205
  2. METFORMIN HYDROCHLORIDE [Concomitant]
     Indication: DIABETES MELLITUS
     Route: 048
  3. VOGLIBOSE [Concomitant]
     Indication: DIABETES MELLITUS
     Route: 048

REACTIONS (3)
  - Trachoma [Recovered/Resolved]
  - Ocular hyperaemia [Recovered/Resolved]
  - Feeling hot [Recovered/Resolved]
